FAERS Safety Report 8342419-2 (Version None)
Quarter: 2012Q2

REPORT INFORMATION
  Report Type: 
  Country: None (occurrence: None)
  Receive Date: 20120508
  Receipt Date: 20120425
  Transmission Date: 20120825
  Serious: No
  Sender: FDA-Public Use
  Company Number: US-BIOGENIDEC-2012BI013318

PATIENT
  Age: 37 Year
  Sex: Female

DRUGS (2)
  1. AVONEX [Concomitant]
     Indication: MULTIPLE SCLEROSIS
     Route: 030
     Dates: start: 20100922
  2. TYSABRI [Suspect]
     Indication: MULTIPLE SCLEROSIS
     Route: 042
     Dates: start: 20120220, end: 20120319

REACTIONS (6)
  - PRURITUS [None]
  - URTICARIA [None]
  - ERYTHEMA [None]
  - CHEST DISCOMFORT [None]
  - ADVERSE DRUG REACTION [None]
  - DYSPNOEA [None]
